FAERS Safety Report 12879304 (Version 2)
Quarter: 2016Q4

REPORT INFORMATION
  Report Type: Report from Study
  Country: US (occurrence: US)
  Receive Date: 20161025
  Receipt Date: 20161102
  Transmission Date: 20170207
  Serious: No
  Sender: FDA-Public Use
  Company Number: PHEH2016US027494

PATIENT
  Age: 56 Year
  Sex: Female
  Weight: 112.5 kg

DRUGS (1)
  1. GILENYA [Suspect]
     Active Substance: FINGOLIMOD HYDROCHLORIDE
     Indication: MULTIPLE SCLEROSIS
     Dosage: 0.5 MG, QD
     Route: 048
     Dates: start: 20140707

REACTIONS (1)
  - Anti-JC virus antibody index [Recovered/Resolved]

NARRATIVE: CASE EVENT DATE: 20160109
